FAERS Safety Report 7419380-8 (Version None)
Quarter: 2011Q2

REPORT INFORMATION
  Report Type: 
  Country: None (occurrence: None)
  Receive Date: 20110415
  Receipt Date: 20110408
  Transmission Date: 20111010
  Serious: Yes (Hospitalization, Other)
  Sender: FDA-Public Use
  Company Number: US-RB-025556-11

PATIENT
  Age: 33 Year
  Sex: Female

DRUGS (2)
  1. SUBOXONE [Suspect]
     Indication: DRUG DEPENDENCE
     Dosage: SUBLINGUAL FILM; 16-24 MG
     Route: 060
     Dates: start: 20110101
  2. SUBOXONE [Suspect]
     Dosage: SUBLINGUAL FILM; 16-24 MG
     Route: 060
     Dates: start: 20100101, end: 20110101

REACTIONS (4)
  - POST PROCEDURAL HAEMORRHAGE [None]
  - PAIN [None]
  - ABDOMINAL ADHESIONS [None]
  - MALAISE [None]
